FAERS Safety Report 25081341 (Version 2)
Quarter: 2025Q4

REPORT INFORMATION
  Report Type: Spontaneous
  Country: GB (occurrence: GB)
  Receive Date: 20250316
  Receipt Date: 20251124
  Transmission Date: 20260118
  Serious: Yes (Other)
  Sender: DEXCEL LTD.
  Company Number: None

PATIENT
  Age: 55 Year
  Sex: Female
  Weight: 86 kg

DRUGS (5)
  1. OMEPRAZOLE [Suspect]
     Active Substance: OMEPRAZOLE
     Dosage: AS REQUIRED TO CONTROL EXCESS ST...
     Dates: start: 20250210
  2. LANSOPRAZOLELANSOPRAZOLE (Specific Substance SUB943) [Concomitant]
     Dosage: AS REQUIRED TO CONTROL EXCESS ST...
     Dates: start: 20250303
  3. ACYCLOVIR [Concomitant]
     Active Substance: ACYCLOVIR
     Indication: Ill-defined disorder
     Dates: start: 20230412
  4. ALBUTEROL [Concomitant]
     Active Substance: ALBUTEROL
     Dosage: INHALE 2 DOSES AS NEEDED
     Dates: start: 20230412
  5. ESTRADIOL [Concomitant]
     Active Substance: ESTRADIOL
     Dates: start: 20241128

REACTIONS (2)
  - Bronchospasm [Unknown]
  - Cough [Recovered/Resolved]

NARRATIVE: CASE EVENT DATE: 20250310
